FAERS Safety Report 4964909-2 (Version None)
Quarter: 2006Q2

REPORT INFORMATION
  Report Type: 
  Country: None (occurrence: None)
  Receive Date: 20060403
  Receipt Date: 20060315
  Transmission Date: 20061013
  Serious: Yes (Congenital Anomaly)
  Sender: FDA-Public Use
  Company Number: 13266

PATIENT
  Sex: Male
  Weight: 3.045 kg

DRUGS (6)
  1. FLUCONAZOLE [Suspect]
  2. PENTAMIDINE ISETHIONATE [Suspect]
  3. METHADONE [Suspect]
  4. SEPTRA [Suspect]
  5. EFAVIRENZ [Suspect]
  6. NEVIRAPINE [Suspect]

REACTIONS (26)
  - BACTERAEMIA [None]
  - BONE DISORDER [None]
  - BRACHYCEPHALY [None]
  - CEREBRAL DISORDER [None]
  - CLONUS [None]
  - CONVULSION NEONATAL [None]
  - CRANIOSYNOSTOSIS [None]
  - DEAFNESS [None]
  - DEVELOPMENTAL DELAY [None]
  - DRUG EXPOSURE DURING PREGNANCY [None]
  - DRUG WITHDRAWAL SYNDROME NEONATAL [None]
  - EAR MALFORMATION [None]
  - EXTENSOR PLANTAR RESPONSE [None]
  - EYELID PTOSIS [None]
  - FACIAL DYSMORPHISM [None]
  - GRAND MAL CONVULSION [None]
  - HYPERTELORISM OF ORBIT [None]
  - JOINT CONTRACTURE [None]
  - KYPHOSIS [None]
  - MULTIPLE CONGENITAL ABNORMALITIES [None]
  - PNEUMONIA STREPTOCOCCAL [None]
  - PREMATURE CLOSURE OF CRANIAL SUTURES [None]
  - SYNDACTYLY [None]
  - SYNOSTOSIS [None]
  - TORTICOLLIS [None]
  - ULTRASOUND ABDOMEN ABNORMAL [None]
